FAERS Safety Report 6607104-3 (Version None)
Quarter: 2010Q1

REPORT INFORMATION
  Report Type: 
  Country: None (occurrence: None)
  Receive Date: 20100219
  Receipt Date: 20100204
  Transmission Date: 20100710
  Serious: Yes (Other)
  Sender: FDA-Public Use
  Company Number: MIN-00581

PATIENT
  Age: 19 Year
  Sex: Female

DRUGS (2)
  1. MINOCYCLINE HCL [Suspect]
     Indication: ACNE PUSTULAR
     Dosage: TWICE A DAY
  2. ORAL CONTRACEPTIVE PILLS [Concomitant]

REACTIONS (6)
  - GRANULOMA [None]
  - HAEMOGLOBIN DECREASED [None]
  - NECROSIS [None]
  - PANNICULITIS [None]
  - POLYARTERITIS NODOSA [None]
  - VASCULITIS NECROTISING [None]
